FAERS Safety Report 14076229 (Version 1)
Quarter: 2017Q4

REPORT INFORMATION
  Report Type: Spontaneous
  Country: ES (occurrence: ES)
  Receive Date: 20171011
  Receipt Date: 20171011
  Transmission Date: 20180321
  Serious: Yes (Other)
  Sender: FDA-Public Use
  Company Number: ES-ASTRAZENECA-2017SF02904

PATIENT
  Age: 68 Year
  Sex: Male

DRUGS (1)
  1. NEXIUM [Suspect]
     Active Substance: ESOMEPRAZOLE MAGNESIUM
     Dosage: 20.0MG UNKNOWN
     Route: 048

REACTIONS (6)
  - Atrial flutter [Unknown]
  - Basal ganglia infarction [Unknown]
  - Obesity [Unknown]
  - Blood pressure increased [Unknown]
  - Cerebrovascular accident [Unknown]
  - Breath sounds abnormal [Unknown]

NARRATIVE: CASE EVENT DATE: 20170719
